FAERS Safety Report 5278919-1 (Version None)
Quarter: 2007Q1

REPORT INFORMATION
  Report Type: 
  Country: None (occurrence: None)
  Receive Date: 20061208
  Receipt Date: 20051012
  Transmission Date: 20070707
  Serious: No
  Sender: FDA-Public Use
  Company Number: 2005UW13704

PATIENT
  Age: 69 Year
  Sex: Female
  Weight: 65.77 kg

DRUGS (5)
  1. CRESTOR [Suspect]
     Indication: BLOOD CHOLESTEROL INCREASED
     Dosage: 10 MG PO
     Route: 048
  2. CRESTOR [Suspect]
     Indication: BLOOD CHOLESTEROL INCREASED
     Dosage: 20 MG PO
     Route: 048
     Dates: end: 20050810
  3. WATER PILLS [Concomitant]
  4. DIOVAN [Concomitant]
  5. ALTACE [Concomitant]

REACTIONS (6)
  - ANXIETY [None]
  - FATIGUE [None]
  - MALAISE [None]
  - MYALGIA [None]
  - PAIN [None]
  - PYREXIA [None]
